FAERS Safety Report 9171681 (Version 4)
Quarter: 2013Q2

REPORT INFORMATION
  Report Type: Spontaneous
  Country: BR (occurrence: None)
  Receive Date: 20130123
  Receipt Date: 20130603
  Transmission Date: 20140414
  Serious: Yes (Life-Threatening, Other)
  Sender: FDA-Public Use
  Company Number: 2013034478

PATIENT
  Age: 18 Year
  Sex: Female

DRUGS (3)
  1. RHOPHYLAC [Suspect]
     Route: 030
     Dates: start: 20130115, end: 20130115
  2. FOLIC ACID (FOLIC ACID0 [Concomitant]
     Route: 048
     Dates: start: 20121012, end: 20121012
  3. FERROUS SULFATE (FERROUS SULFATE) [Concomitant]

REACTIONS (4)
  - Expired drug administered [None]
  - Exposure during pregnancy [None]
  - Caesarean section [None]
  - Haemorrhage [None]
